FAERS Safety Report 24238388 (Version 2)
Quarter: 2024Q3

REPORT INFORMATION
  Report Type: Spontaneous
  Country: HK (occurrence: HK)
  Receive Date: 20240822
  Receipt Date: 20240826
  Transmission Date: 20241017
  Serious: Yes (Life-Threatening, Other)
  Sender: PFIZER
  Company Number: HK-PFIZER INC-202400239775

PATIENT
  Sex: Male

DRUGS (5)
  1. PIPERACILLIN SODIUM\TAZOBACTAM SODIUM [Suspect]
     Active Substance: PIPERACILLIN SODIUM\TAZOBACTAM SODIUM
     Dosage: UNK
     Route: 042
     Dates: start: 20240517, end: 20240518
  2. FLUIMUCIL [Concomitant]
     Active Substance: ACETYLCYSTEINE
     Dosage: UNK
     Route: 048
     Dates: start: 20240517
  3. DOXYCYCLINE [Concomitant]
     Active Substance: DOXYCYCLINE\DOXYCYCLINE HYCLATE
     Dosage: UNK
     Route: 048
     Dates: start: 20240517, end: 20240517
  4. ACETAMINOPHEN [Concomitant]
     Active Substance: ACETAMINOPHEN
     Indication: Pyrexia
     Dosage: UNK
     Route: 048
     Dates: start: 20240517
  5. COCILLANA CO [Concomitant]
     Dosage: UNK
     Route: 048
     Dates: start: 20240517

REACTIONS (2)
  - Rash [Recovered/Resolved]
  - Lip swelling [Recovered/Resolved]

NARRATIVE: CASE EVENT DATE: 20240517
